FAERS Safety Report 21076029 (Version 1)
Quarter: 2022Q3

REPORT INFORMATION
  Report Type: Spontaneous
  Country: US (occurrence: US)
  Receive Date: 20220713
  Receipt Date: 20220713
  Transmission Date: 20221026
  Serious: No
  Sender: FDA-Public Use
  Company Number: US-TEVA-2022-US-2047767

PATIENT
  Sex: Male

DRUGS (2)
  1. PODOFILOX [Suspect]
     Active Substance: PODOFILOX
     Indication: Molluscum contagiosum
     Route: 065
  2. PODOFILOX [Suspect]
     Active Substance: PODOFILOX
     Indication: Anogenital warts

REACTIONS (3)
  - Adverse drug reaction [Unknown]
  - Chemical burn [Unknown]
  - Product prescribing issue [Unknown]
